FAERS Safety Report 18608255 (Version 1)
Quarter: 2020Q4

REPORT INFORMATION
  Report Type: Spontaneous
  Country: DK (occurrence: DK)
  Receive Date: 20201212
  Receipt Date: 20201212
  Transmission Date: 20210114
  Serious: Yes (Death, Hospitalization, Other)
  Sender: FDA-Public Use
  Company Number: NVSC2020DK330735

PATIENT
  Sex: Male
  Weight: 87.3 kg

DRUGS (3)
  1. OPDIVO [Suspect]
     Active Substance: NIVOLUMAB
     Dosage: 260 MG, BIW (260 MILLIGRAM, APPROXIMATELY)
     Route: 042
     Dates: start: 20170719, end: 20171124
  2. PREDNISOLONE. [Suspect]
     Active Substance: PREDNISOLONE
     Indication: PNEUMONITIS
     Dosage: 100 MG
     Route: 048
     Dates: start: 201711, end: 201802
  3. OPDIVO [Suspect]
     Active Substance: NIVOLUMAB
     Indication: LUNG NEOPLASM MALIGNANT
     Dosage: 2 MG/KG, (BMS PRESENTATION: 3MG/KG)
     Route: 042
     Dates: start: 201611, end: 201712

REACTIONS (6)
  - Pelvic inflammatory disease [Unknown]
  - Pneumonitis [Unknown]
  - Sepsis [Fatal]
  - Hepatitis [Unknown]
  - Pneumocystis jirovecii pneumonia [Fatal]
  - Metastases to lung [Unknown]

NARRATIVE: CASE EVENT DATE: 20171116
